FAERS Safety Report 4423963-7 (Version None)
Quarter: 2004Q3

REPORT INFORMATION
  Report Type: 
  Country: None (occurrence: None)
  Receive Date: 20040812
  Receipt Date: 20040723
  Transmission Date: 20050211
  Serious: Yes (Other)
  Sender: FDA-Public Use
  Company Number: US-BRISTOL-MYERS SQUIBB COMPANY-12650222

PATIENT
  Age: 70 Year
  Sex: Male
  Weight: 110 kg

DRUGS (19)
  1. GATIFLOXACIN IV [Suspect]
     Indication: PNEUMONIA
     Route: 042
  2. GATIFLOXACIN [Suspect]
     Indication: PNEUMONIA
     Route: 048
  3. GLIPIZIDE [Concomitant]
     Dosage: DOSAGE INCREASED TO 10 MG TWICE DAILY AFTER HOSPITAL DISCHARGE,THEN DECREASED TO 5 MG/DAY.
  4. SIMVASTATIN [Concomitant]
  5. ASPIRIN [Concomitant]
  6. FUROSEMIDE [Concomitant]
  7. PSEUDOEPHEDRINE HCL [Concomitant]
  8. ASCORBIC ACID [Concomitant]
  9. FERROUS SULFATE TAB [Concomitant]
  10. RABEPRAZOLE SODIUM [Concomitant]
  11. CAPTOPRIL [Concomitant]
  12. ISOSORBIDE MONONITRATE [Concomitant]
  13. METOPROLOL [Concomitant]
  14. SPIRONOLACTONE [Concomitant]
  15. DIGOXIN [Concomitant]
  16. WARFARIN SODIUM [Concomitant]
  17. CITALOPRAM [Concomitant]
  18. BECLOMETHASONE INHALER [Concomitant]
     Route: 045
  19. EYE DROPS [Concomitant]
     Indication: GLAUCOMA

REACTIONS (1)
  - HYPERGLYCAEMIA [None]
